FAERS Safety Report 23566391 (Version 1)
Quarter: 2024Q1

REPORT INFORMATION
  Report Type: Spontaneous
  Country: US (occurrence: US)
  Receive Date: 20240226
  Receipt Date: 20240226
  Transmission Date: 20240409
  Serious: No
  Sender: FDA-Public Use
  Company Number: US-KARYOPHARM-2023KPT002184

PATIENT

DRUGS (2)
  1. XPOVIO [Suspect]
     Active Substance: SELINEXOR
     Indication: Malignant neoplasm of unknown primary site
  2. POMALIDOMIDE [Concomitant]
     Active Substance: POMALIDOMIDE

REACTIONS (2)
  - Adverse event [Unknown]
  - Off label use [Unknown]
